FAERS Safety Report 20123140 (Version 1)
Quarter: 2021Q4

REPORT INFORMATION
  Report Type: Spontaneous
  Country: US (occurrence: US)
  Receive Date: 20211129
  Receipt Date: 20211129
  Transmission Date: 20220304
  Serious: Yes (Death, Hospitalization)
  Sender: FDA-Public Use
  Company Number: None

PATIENT
  Age: 26 Year
  Sex: Female
  Weight: 57 kg

DRUGS (1)
  1. TYLENOL EXTRA STRENGTH [Suspect]
     Active Substance: ACETAMINOPHEN
     Indication: Product used for unknown indication
     Dosage: ACETAMINOPHEN TOTAL DOSE 32500 (8125 MG PER DAY) FOR 4 DAYS (65 TABLETS)?3000 MG FOR 12 MONTHS;
     Route: 048
     Dates: end: 20000712

REACTIONS (10)
  - Acute kidney injury [Fatal]
  - Respiratory failure [Fatal]
  - Brain oedema [Fatal]
  - Arrhythmia [Fatal]
  - Haemodynamic instability [Fatal]
  - Seizure [Fatal]
  - Chest X-ray abnormal [Fatal]
  - Cardiac arrest [Fatal]
  - Accidental overdose [Fatal]
  - Acute hepatic failure [Fatal]

NARRATIVE: CASE EVENT DATE: 20000714
